FAERS Safety Report 25904163 (Version 2)
Quarter: 2025Q4

REPORT INFORMATION
  Report Type: Spontaneous
  Country: US (occurrence: US)
  Receive Date: 20251010
  Receipt Date: 20251205
  Transmission Date: 20260118
  Serious: Yes (Hospitalization)
  Sender: RIGEL PHARMACEUTICALS
  Company Number: US-RIGEL Pharmaceuticals, INC.-20251000016

PATIENT
  Sex: Female

DRUGS (2)
  1. GAVRETO [Suspect]
     Active Substance: PRALSETINIB
     Indication: Lung neoplasm malignant
     Dosage: 100 MG, TID
     Route: 065
     Dates: start: 20250511, end: 2025
  2. GAVRETO [Suspect]
     Active Substance: PRALSETINIB
     Dosage: 200 MG, QD
     Route: 065
     Dates: start: 2025

REACTIONS (2)
  - Myocardial infarction [Unknown]
  - Product prescribing issue [Unknown]

NARRATIVE: CASE EVENT DATE: 20250101
